FAERS Safety Report 6343871-4 (Version None)
Quarter: 2009Q3

REPORT INFORMATION
  Report Type: 
  Country: None (occurrence: None)
  Receive Date: 20090908
  Receipt Date: 20090828
  Transmission Date: 20100115
  Serious: Yes (Hospitalization)
  Sender: FDA-Public Use
  Company Number: FR-JNJFOC-20090900152

PATIENT
  Age: 48 Year
  Sex: Male

DRUGS (5)
  1. INTELENCE [Suspect]
     Indication: HIV INFECTION
     Route: 048
     Dates: start: 20080101
  2. ISENTRESS [Suspect]
     Indication: HIV INFECTION
     Route: 048
  3. KALETRA [Suspect]
     Indication: HIV INFECTION
  4. IMODIUM [Concomitant]
  5. UVEDOSE [Concomitant]

REACTIONS (1)
  - RENAL TUBULAR DISORDER [None]
